FAERS Safety Report 5330097-6 (Version None)
Quarter: 2007Q2

REPORT INFORMATION
  Report Type: 
  Country: None (occurrence: None)
  Receive Date: 20070521
  Receipt Date: 20070507
  Transmission Date: 20071010
  Serious: Yes (Other)
  Sender: FDA-Public Use
  Company Number: US-MERCK-0601USA02833

PATIENT
  Age: 49 Year
  Sex: Male

DRUGS (13)
  1. FOSAMAX [Suspect]
     Indication: SPINAL CORD COMPRESSION
     Route: 048
     Dates: start: 20051001, end: 20060301
  2. ZOMETA [Suspect]
     Route: 042
     Dates: start: 20031101, end: 20050101
  3. FOSAMAX PLUS D [Suspect]
     Route: 048
     Dates: start: 20050620, end: 20050101
  4. LIDODERM [Concomitant]
     Indication: BACK PAIN
     Route: 065
     Dates: start: 20050401
  5. FLEXERIL [Concomitant]
     Indication: BACK PAIN
     Route: 065
     Dates: start: 20050401
  6. NORCO [Concomitant]
     Indication: BACK PAIN
     Route: 048
  7. CASODEX [Concomitant]
     Route: 048
     Dates: start: 20030101, end: 20061101
  8. COUMADIN [Concomitant]
     Indication: ANTICOAGULANT THERAPY
     Route: 048
     Dates: start: 20040201
  9. COUMADIN [Concomitant]
     Route: 048
     Dates: start: 20040201
  10. LUPRON [Concomitant]
     Indication: NEOPLASM MALIGNANT
     Route: 065
     Dates: start: 20030101
  11. HYDROCHLOROT [Concomitant]
     Indication: HYPERTENSION
     Route: 048
     Dates: start: 20050101
  12. CITRACAL CAPLETS + D [Concomitant]
     Route: 048
     Dates: start: 20050701
  13. TAXOTERE [Concomitant]
     Route: 065
     Dates: start: 20041001, end: 20050701

REACTIONS (10)
  - ANXIETY [None]
  - CHEST PAIN [None]
  - DIZZINESS [None]
  - ESSENTIAL HYPERTENSION [None]
  - INGUINAL HERNIA [None]
  - NAUSEA [None]
  - OSTEONECROSIS [None]
  - OSTEOSCLEROSIS [None]
  - SINUS POLYP [None]
  - VOMITING [None]
